FAERS Safety Report 18291292 (Version 1)
Quarter: 2020Q3

REPORT INFORMATION
  Report Type: Spontaneous
  Country: IN (occurrence: IN)
  Receive Date: 20200922
  Receipt Date: 20200922
  Transmission Date: 20201103
  Serious: Yes (Hospitalization, Other)
  Sender: FDA-Public Use
  Company Number: IN-LUPIN PHARMACEUTICALS INC.-2020-06182

PATIENT
  Age: 41 Year
  Sex: Male

DRUGS (1)
  1. METRONIDAZOLE TABLETS [Suspect]
     Active Substance: METRONIDAZOLE
     Indication: DECUBITUS ULCER
     Dosage: UNK?POWDERED METRONIDAZOLE TABLETS USED WITH A GEL FOR 8 TO 10 MONTHS
     Route: 061

REACTIONS (3)
  - Incorrect route of product administration [Unknown]
  - Wrong technique in product usage process [Unknown]
  - Toxic encephalopathy [Recovered/Resolved]
